FAERS Safety Report 15328883 (Version 2)
Quarter: 2020Q1

REPORT INFORMATION
  Report Type: Report from Study
  Country: US (occurrence: US)
  Receive Date: 20180829
  Receipt Date: 20200121
  Transmission Date: 20200409
  Serious: Yes (Other)
  Sender: FDA-Public Use
  Company Number: US-ROCHE-2175605

PATIENT
  Age: 49 Year
  Sex: Female
  Weight: 99.88 kg

DRUGS (4)
  1. ZIRGAN [Concomitant]
     Active Substance: GANCICLOVIR
     Route: 065
     Dates: start: 20180820
  2. ACYCLOVIR [ACICLOVIR] [Concomitant]
     Active Substance: ACYCLOVIR
     Route: 065
     Dates: start: 20180821
  3. OCREVUS [Suspect]
     Active Substance: OCRELIZUMAB
     Indication: MULTIPLE SCLEROSIS
     Dosage: ON 18/APR/2018, SHE RECEIVED OCRELIZUMAB INFUSION.
     Route: 065
     Dates: start: 20180404
  4. PREDNISOLONE ACETATE. [Concomitant]
     Active Substance: PREDNISOLONE ACETATE
     Route: 047

REACTIONS (2)
  - Herpes ophthalmic [Recovered/Resolved]
  - Eye pain [Not Recovered/Not Resolved]

NARRATIVE: CASE EVENT DATE: 20180819
